FAERS Safety Report 15889490 (Version 1)
Quarter: 2019Q1

REPORT INFORMATION
  Report Type: Spontaneous
  Country: US (occurrence: US)
  Receive Date: 20190130
  Receipt Date: 20190130
  Transmission Date: 20190417
  Serious: Yes (Disabling, Other)
  Sender: FDA-Public Use
  Company Number: None

PATIENT
  Age: 50 Year
  Sex: Male
  Weight: 94.5 kg

DRUGS (5)
  1. LISINOPRIL. [Concomitant]
     Active Substance: LISINOPRIL
  2. BCAAS [Concomitant]
  3. CHANTIX [Suspect]
     Active Substance: VARENICLINE TARTRATE
     Indication: SMOKING CESSATION THERAPY
     Route: 048
     Dates: start: 20181010, end: 20181227
  4. MULTI-VITAMINS [Concomitant]
  5. ADDERALL [Concomitant]
     Active Substance: AMPHETAMINE ASPARTATE\AMPHETAMINE SULFATE\DEXTROAMPHETAMINE SACCHARATE\DEXTROAMPHETAMINE SULFATE

REACTIONS (29)
  - Mood swings [None]
  - Hostility [None]
  - Headache [None]
  - Suicidal ideation [None]
  - Suicidal behaviour [None]
  - Clumsiness [None]
  - Loss of personal independence in daily activities [None]
  - Depression [None]
  - Irritability [None]
  - Paraesthesia [None]
  - Mental disorder [None]
  - Apathy [None]
  - Anhedonia [None]
  - Emotional disorder [None]
  - Anxiety [None]
  - Abnormal behaviour [None]
  - Muscle spasms [None]
  - Stress [None]
  - Major depression [None]
  - Hypoaesthesia [None]
  - Indifference [None]
  - Dizziness [None]
  - Quality of life decreased [None]
  - Drug withdrawal syndrome [None]
  - Nicotine dependence [None]
  - Dysgeusia [None]
  - Confusional state [None]
  - Parosmia [None]
  - Nausea [None]

NARRATIVE: CASE EVENT DATE: 20181226
